FAERS Safety Report 13879101 (Version 1)
Quarter: 2017Q3

REPORT INFORMATION
  Report Type: Report from Study
  Country: AU (occurrence: AU)
  Receive Date: 20170817
  Receipt Date: 20170817
  Transmission Date: 20171127
  Serious: Yes (Hospitalization, Other)
  Sender: FDA-Public Use
  Company Number: AU-MYLANLABS-2017M1049770

PATIENT
  Age: 27 Year
  Sex: Male
  Weight: 122 kg

DRUGS (14)
  1. CLOZAPINE. [Suspect]
     Active Substance: CLOZAPINE
     Dosage: 75 MG, AM
     Route: 048
  2. CLOZAPINE. [Suspect]
     Active Substance: CLOZAPINE
     Dosage: 50 MG, PM
     Route: 048
     Dates: start: 2017
  3. CLOZAPINE. [Suspect]
     Active Substance: CLOZAPINE
     Dosage: 600 MG, PM
     Route: 048
     Dates: start: 2017
  4. CLOZAPINE. [Suspect]
     Active Substance: CLOZAPINE
     Dosage: UNK
     Route: 048
  5. AMITRIPTYLINE HYDROCHLORIDE W/PERPHENAZINE [Concomitant]
     Indication: PRODUCT USED FOR UNKNOWN INDICATION
     Dosage: 25 MG, PM
     Dates: start: 2017
  6. CLOZAPINE. [Suspect]
     Active Substance: CLOZAPINE
     Dosage: 100 MG, AM
     Route: 048
     Dates: start: 2017
  7. METFORMIN [Suspect]
     Active Substance: METFORMIN HYDROCHLORIDE
     Indication: PRODUCT USED FOR UNKNOWN INDICATION
  8. BISOPROLOL [Suspect]
     Active Substance: BISOPROLOL
     Indication: PRODUCT USED FOR UNKNOWN INDICATION
     Dosage: 5 MG, QD
     Dates: start: 20170621
  9. CLOZAPINE. [Suspect]
     Active Substance: CLOZAPINE
     Indication: SCHIZOPHRENIA
     Dosage: 900 MG, QD
     Route: 048
     Dates: start: 20020712, end: 20041208
  10. CLOZAPINE. [Suspect]
     Active Substance: CLOZAPINE
     Dosage: 600 MG, PM
     Route: 048
  11. DOBUTAMINE [Suspect]
     Active Substance: DOBUTAMINE\DOBUTAMINE HYDROCHLORIDE
     Indication: PRODUCT USED FOR UNKNOWN INDICATION
  12. PERINDOPRIL [Suspect]
     Active Substance: PERINDOPRIL
     Indication: PRODUCT USED FOR UNKNOWN INDICATION
     Dosage: 5 MG, QD
     Dates: start: 20170621
  13. DIAZEPAM W/ISOPROPAMIDE IODIDE [Concomitant]
     Indication: PRODUCT USED FOR UNKNOWN INDICATION
     Dosage: 5 MG, PRN
  14. CLOZAPINE. [Suspect]
     Active Substance: CLOZAPINE
     Dosage: 600 MG, PM
     Route: 048
     Dates: start: 2017

REACTIONS (23)
  - Insulin resistance [Unknown]
  - Salivary hypersecretion [Not Recovered/Not Resolved]
  - Alanine aminotransferase increased [Unknown]
  - Myocarditis [Unknown]
  - Schizophrenia [Recovering/Resolving]
  - Cardiac failure [Unknown]
  - Heart rate increased [Not Recovered/Not Resolved]
  - Antipsychotic drug level increased [Unknown]
  - Cyclothymic disorder [Unknown]
  - Blood pressure increased [Not Recovered/Not Resolved]
  - Tangentiality [Unknown]
  - Weight decreased [Unknown]
  - Sinus tachycardia [Unknown]
  - Treatment noncompliance [Recovered/Resolved]
  - Obesity [Unknown]
  - Wheezing [Unknown]
  - Aspartate aminotransferase increased [Unknown]
  - Blood triglycerides increased [Unknown]
  - Psychotic disorder [Not Recovered/Not Resolved]
  - Cardiomyopathy [Unknown]
  - Chest pain [Recovering/Resolving]
  - Transferrin saturation decreased [Unknown]
  - Dysprosody [Unknown]

NARRATIVE: CASE EVENT DATE: 200412
